FAERS Safety Report 13906644 (Version 1)
Quarter: 2017Q3

REPORT INFORMATION
  Report Type: Spontaneous
  Country: US (occurrence: US)
  Receive Date: 20170825
  Receipt Date: 20170825
  Transmission Date: 20171127
  Serious: No
  Sender: FDA-Public Use
  Company Number: US-SUNOVION-2017SUN003612

PATIENT
  Sex: Female

DRUGS (2)
  1. LATUDA [Suspect]
     Active Substance: LURASIDONE HYDROCHLORIDE
     Indication: BIPOLAR DISORDER
     Dosage: 30/40  MG, QD
     Route: 048
     Dates: start: 20170707, end: 20170806
  2. XANAX [Concomitant]
     Active Substance: ALPRAZOLAM

REACTIONS (5)
  - Amnesia [Not Recovered/Not Resolved]
  - Feeling cold [Unknown]
  - Anger [Not Recovered/Not Resolved]
  - Dysarthria [Recovered/Resolved]
  - Piloerection [Unknown]
